FAERS Safety Report 8619220-5 (Version None)
Quarter: 2012Q3

REPORT INFORMATION
  Report Type: 
  Country: None (occurrence: None)
  Receive Date: 20120824
  Receipt Date: 20120821
  Transmission Date: 20120928
  Serious: Yes (Death)
  Sender: FDA-Public Use
  Company Number: IT-JNJFOC-20120810361

PATIENT
  Age: 51 Year
  Sex: Male

DRUGS (1)
  1. IBUPROFEN [Suspect]
     Indication: PRODUCT USED FOR UNKNOWN INDICATION
     Dosage: 30 TABLETS OF 400 MG
     Route: 048

REACTIONS (6)
  - HYPOTENSION [None]
  - COMPLETED SUICIDE [None]
  - RESPIRATORY DEPRESSION [None]
  - METABOLIC ACIDOSIS [None]
  - OVERDOSE [None]
  - COMA [None]
